FAERS Safety Report 13909837 (Version 1)
Quarter: 2017Q3

REPORT INFORMATION
  Report Type: Spontaneous
  Country: US (occurrence: US)
  Receive Date: 20170828
  Receipt Date: 20170828
  Transmission Date: 20171127
  Serious: No
  Sender: FDA-Public Use
  Company Number: US-APOTEX-2017AP016442

PATIENT
  Age: 70 Year
  Sex: Female

DRUGS (1)
  1. IMATINIB MESYLATE TABLETS [Suspect]
     Active Substance: IMATINIB MESYLATE
     Indication: DESMOID TUMOUR
     Dosage: UNK
     Route: 065

REACTIONS (5)
  - Dermatitis [Unknown]
  - Toxicity to various agents [Unknown]
  - Fatigue [Unknown]
  - Breast oedema [Recovered/Resolved]
  - Nausea [Unknown]
